FAERS Safety Report 18336546 (Version 1)
Quarter: 2020Q4

REPORT INFORMATION
  Report Type: Spontaneous
  Country: CA (occurrence: CA)
  Receive Date: 20201001
  Receipt Date: 20201001
  Transmission Date: 20210113
  Serious: Yes (Other)
  Sender: FDA-Public Use
  Company Number: CA-CELLTRION INC.-2019CA025009

PATIENT

DRUGS (13)
  1. INFLECTRA [Suspect]
     Active Substance: INFLIXIMAB-DYYB
     Dosage: 400 MG Q 0,2, 6 WEEKS THEN EVERY 8 WEEKS
     Route: 042
     Dates: start: 20191219
  2. INFLECTRA [Suspect]
     Active Substance: INFLIXIMAB-DYYB
     Dosage: 400 MG Q 0,2, 6 WEEKS THEN EVERY 8 WEEKS
     Route: 042
     Dates: start: 20190709
  3. INFLECTRA [Suspect]
     Active Substance: INFLIXIMAB-DYYB
     Indication: RHEUMATOID ARTHRITIS
     Dosage: 400 MG Q 0,2, 6 WEEKS THEN EVERY 8 WEEKS
     Route: 042
     Dates: start: 20190326
  4. INFLECTRA [Suspect]
     Active Substance: INFLIXIMAB-DYYB
     Dosage: 400 MG Q 0,2, 6 WEEKS THEN EVERY 8 WEEKS
     Route: 042
     Dates: start: 20200213
  5. DIPHENHYDRAMINE. [Concomitant]
     Active Substance: DIPHENHYDRAMINE
     Indication: PREMEDICATION
     Dosage: 50 MG
     Dates: start: 20200805, end: 20200805
  6. DIMENHYDRINATE. [Concomitant]
     Active Substance: DIMENHYDRINATE
     Indication: PREMEDICATION
     Dosage: 50 MG
     Dates: start: 20200805, end: 20200805
  7. INFLECTRA [Suspect]
     Active Substance: INFLIXIMAB-DYYB
     Dosage: 400 MG Q 0,2, 6 WEEKS THEN EVERY 8 WEEKS
     Route: 042
     Dates: start: 20200409
  8. INFLECTRA [Suspect]
     Active Substance: INFLIXIMAB-DYYB
     Dosage: 400 MG Q 0,2, 6 WEEKS THEN EVERY 8 WEEKS
     Route: 042
     Dates: start: 20191111
  9. INFLECTRA [Suspect]
     Active Substance: INFLIXIMAB-DYYB
     Dosage: 400 MG Q 0,2, 6 WEEKS THEN EVERY 8 WEEKS
     Route: 042
     Dates: start: 20200805
  10. ACETAMINOPHEN. [Concomitant]
     Active Substance: ACETAMINOPHEN
     Indication: PREMEDICATION
     Dosage: 650 MG
     Dates: start: 20200805, end: 20200805
  11. INFLECTRA [Suspect]
     Active Substance: INFLIXIMAB-DYYB
     Dosage: 400 MG Q 0,2, 6 WEEKS THEN EVERY 8 WEEKS
     Route: 042
     Dates: start: 20200604
  12. INFLECTRA [Suspect]
     Active Substance: INFLIXIMAB-DYYB
     Dosage: 400 MG Q 0,2, 6 WEEKS THEN EVERY 8 WEEKS
     Route: 042
     Dates: start: 20200924
  13. HYDROCORTISONE. [Concomitant]
     Active Substance: HYDROCORTISONE
     Indication: PREMEDICATION
     Dosage: 100 MG
     Dates: start: 20200805, end: 20200805

REACTIONS (4)
  - Inappropriate schedule of product administration [Unknown]
  - Tooth abscess [Unknown]
  - Infection [Recovered/Resolved]
  - Oral herpes [Not Recovered/Not Resolved]

NARRATIVE: CASE EVENT DATE: 20191219
